FAERS Safety Report 8128666-3 (Version None)
Quarter: 2012Q1

REPORT INFORMATION
  Report Type: 
  Country: None (occurrence: None)
  Receive Date: 20120210
  Receipt Date: 20111222
  Transmission Date: 20120608
  Serious: No
  Sender: FDA-Public Use
  Company Number: US-BRISTOL-MYERS SQUIBB COMPANY-16311896

PATIENT
  Sex: Female

DRUGS (1)
  1. ORENCIA [Suspect]
     Indication: RHEUMATOID ARTHRITIS
     Dosage: LAST INF:AUG2011
     Route: 042
     Dates: start: 20110628

REACTIONS (3)
  - DRUG INEFFECTIVE [None]
  - URINARY TRACT INFECTION [None]
  - ADVERSE EVENT [None]
